FAERS Safety Report 5055830-2 (Version None)
Quarter: 2006Q3

REPORT INFORMATION
  Report Type: 
  Country: None (occurrence: None)
  Receive Date: 20060717
  Receipt Date: 20060717
  Transmission Date: 20061208
  Serious: Yes (Life-Threatening, Hospitalization, Disabling)
  Sender: FDA-Public Use
  Company Number: None

PATIENT
  Age: 81 Year
  Sex: Male
  Weight: 49.8957 kg

DRUGS (18)
  1. WARFARIN SODIUM [Suspect]
     Indication: ATRIAL FIBRILLATION
     Dosage: 5 MG QD PO
     Route: 048
     Dates: start: 19950614, end: 20060519
  2. WARFARIN SODIUM [Suspect]
     Indication: TRANSIENT ISCHAEMIC ATTACK
     Dosage: 5 MG QD PO
     Route: 048
     Dates: start: 19950614, end: 20060519
  3. COMBIVENT [Concomitant]
  4. ALLOPURINOL [Concomitant]
  5. BRIMONIDINE TARTRATE [Concomitant]
  6. INSTILL [Concomitant]
  7. FLUNISOLIDE [Concomitant]
  8. FUROSEMIDE [Concomitant]
  9. GLYBURIDE [Concomitant]
  10. LEVOTHYROXINE SODIUM [Concomitant]
  11. LISINOPRIL [Concomitant]
  12. METORMIN [Concomitant]
  13. MOXIFLOXACIN HCL [Concomitant]
  14. QUININE SULFATE [Concomitant]
  15. SIMVASTATIN [Concomitant]
  16. TAMSULOSIN HCL [Concomitant]
  17. TRAZODONE HCL [Concomitant]
  18. METOPROLOL [Concomitant]

REACTIONS (2)
  - INTERNATIONAL NORMALISED RATIO INCREASED [None]
  - UPPER GASTROINTESTINAL HAEMORRHAGE [None]
